FAERS Safety Report 10101721 (Version 1)
Quarter: 2014Q2

REPORT INFORMATION
  Report Type: Spontaneous
  Country: US (occurrence: None)
  Receive Date: 20140422
  Receipt Date: 20140422
  Transmission Date: 20141212
  Serious: Yes (Other)
  Sender: FDA-Public Use
  Company Number: 1000582314-2014-0006

PATIENT
  Age: 63 Year
  Sex: Female

DRUGS (2)
  1. FLUORIDEX TOOTHPASTE (1.1 % NAF WITH KNO3) [Suspect]
     Indication: DENTAL CARIES
     Dosage: CARIES
     Route: 061
  2. FLUORIDEX TOOTHPASTE (1.1 % NAF WITH KNO3) [Suspect]
     Indication: PROPHYLAXIS
     Dosage: CARIES
     Route: 061

REACTIONS (2)
  - Diarrhoea [None]
  - Abdominal pain upper [None]
